FAERS Safety Report 7572708-0 (Version None)
Quarter: 2011Q2

REPORT INFORMATION
  Report Type: 
  Country: None (occurrence: None)
  Receive Date: 20110620
  Receipt Date: 20110603
  Transmission Date: 20111010
  Serious: Yes (Death, Hospitalization)
  Sender: FDA-Public Use
  Company Number: 2011MA006766

PATIENT
  Age: 53 Year

DRUGS (1)
  1. METFORMIN HYDROCHLORIDE [Suspect]
     Indication: DIABETES MELLITUS
     Dosage: 850 MG;TID;

REACTIONS (10)
  - PULSE ABSENT [None]
  - HYPOTENSION [None]
  - HAEMODIALYSIS [None]
  - TOXICITY TO VARIOUS AGENTS [None]
  - RENAL FAILURE ACUTE [None]
  - MYOCARDIAL INFARCTION [None]
  - LACTIC ACIDOSIS [None]
  - VENOUS OXYGEN PARTIAL PRESSURE INCREASED [None]
  - LOSS OF CONSCIOUSNESS [None]
  - ANAEMIA [None]
